FAERS Safety Report 21147165 (Version 1)
Quarter: 2022Q3

REPORT INFORMATION
  Report Type: Spontaneous
  Country: FR (occurrence: FR)
  Receive Date: 20220729
  Receipt Date: 20220729
  Transmission Date: 20221026
  Serious: Yes (Death, Other)
  Sender: FDA-Public Use
  Company Number: FR-PFIZER INC-202201014649

PATIENT
  Age: 32 Year
  Sex: Male

DRUGS (5)
  1. DOXORUBICIN HYDROCHLORIDE [Suspect]
     Active Substance: DOXORUBICIN HYDROCHLORIDE
     Indication: Glomangiopericytoma
     Dosage: UNK, CYCLIC
  2. CARBOPLATIN [Suspect]
     Active Substance: CARBOPLATIN
     Indication: Glomangiopericytoma
     Dosage: 3 CYCLES
  3. ETOPOSIDE [Suspect]
     Active Substance: ETOPOSIDE
     Indication: Glomangiopericytoma
     Dosage: 3 CYCLES
  4. CYCLOPHOSPHAMIDE [Suspect]
     Active Substance: CYCLOPHOSPHAMIDE
     Indication: Glomangiopericytoma
     Dosage: UNK, CYCLIC
  5. TAZEMETOSTAT [Suspect]
     Active Substance: TAZEMETOSTAT
     Indication: Glomangiopericytoma
     Dosage: 800 MG, 2X/DAY

REACTIONS (1)
  - Disease progression [Fatal]
